FAERS Safety Report 20620889 (Version 1)
Quarter: 2022Q1

REPORT INFORMATION
  Report Type: Spontaneous
  Country: US (occurrence: None)
  Receive Date: 20220321
  Receipt Date: 20220321
  Transmission Date: 20220423
  Serious: Yes (Other)
  Sender: FDA-Public Use
  Company Number: None

PATIENT
  Age: 72 Year
  Sex: Male
  Weight: 81 kg

DRUGS (6)
  1. EVUSHELD [Suspect]
     Active Substance: CILGAVIMAB\TIXAGEVIMAB
     Indication: Immunodeficiency
     Dosage: OTHER QUANTITY : 2 INJECTION(S);?FREQUENCY : AS NEEDED;?
     Route: 030
     Dates: start: 20200315, end: 20200315
  2. Pomalyst Dara Fast Pro Blood pressure [Concomitant]
  3. cholestrol drugs [Concomitant]
  4. 81mg asprin [Concomitant]
  5. VITAMIN C [Concomitant]
     Active Substance: ASCORBIC ACID
  6. VITAMIN D NOS [Concomitant]
     Active Substance: VITAMIN D NOS

REACTIONS (6)
  - Neck pain [None]
  - Musculoskeletal stiffness [None]
  - Back pain [None]
  - Procedural pain [None]
  - Pain [None]
  - Insomnia [None]

NARRATIVE: CASE EVENT DATE: 20200315
